FAERS Safety Report 20681749 (Version 2)
Quarter: 2022Q2

REPORT INFORMATION
  Report Type: Spontaneous
  Country: IT (occurrence: IT)
  Receive Date: 20220406
  Receipt Date: 20220520
  Transmission Date: 20220721
  Serious: Yes (Other)
  Sender: FDA-Public Use
  Company Number: IT-MINISAL02-853150

PATIENT
  Age: 54 Year
  Sex: Female

DRUGS (3)
  1. AMLODIPINE [Suspect]
     Active Substance: AMLODIPINE BESYLATE
     Indication: Product used for unknown indication
     Dosage: 5 MILLIGRAM, DAILY
     Route: 048
     Dates: start: 20210101, end: 20210608
  2. COVID-19 VACCINE JANSSEN (AD26.COV2.S) [Concomitant]
     Dosage: ()
     Route: 065
  3. COVID-19 VACCINE JANSSEN (AD26.COV2.S) [Concomitant]
     Indication: COVID-19 immunisation
     Dosage: ()
     Route: 065

REACTIONS (3)
  - Q fever [Unknown]
  - Nausea [Unknown]
  - Decreased appetite [Unknown]

NARRATIVE: CASE EVENT DATE: 20210608
